FAERS Safety Report 21609934 (Version 2)
Quarter: 2022Q4

REPORT INFORMATION
  Report Type: Spontaneous
  Country: US (occurrence: None)
  Receive Date: 20221117
  Receipt Date: 20221221
  Transmission Date: 20230113
  Serious: No
  Sender: FDA-Public Use
  Company Number: 2022A367001

PATIENT
  Age: 790 Month
  Sex: Female
  Weight: 90.7 kg

DRUGS (1)
  1. BYDUREON BCISE [Suspect]
     Active Substance: EXENATIDE
     Indication: Diabetes mellitus
     Route: 058
     Dates: start: 202208

REACTIONS (7)
  - Injection site indentation [Unknown]
  - Injection site bruising [Not Recovered/Not Resolved]
  - Fall [Unknown]
  - Injection site haemorrhage [Recovered/Resolved]
  - Contusion [Unknown]
  - Wrong technique in device usage process [Unknown]
  - Device issue [Unknown]

NARRATIVE: CASE EVENT DATE: 20220801
